FAERS Safety Report 10658214 (Version 1)
Quarter: 2014Q4

REPORT INFORMATION
  Report Type: Spontaneous
  Country: US (occurrence: US)
  Receive Date: 20141217
  Receipt Date: 20141217
  Transmission Date: 20150529
  Serious: No
  Sender: FDA-Public Use
  Company Number: US-ELI_LILLY_AND_COMPANY-US201411009862

PATIENT
  Sex: Female
  Weight: 39.91 kg

DRUGS (2)
  1. FORTEO [Suspect]
     Active Substance: TERIPARATIDE
     Indication: OSTEOPOROSIS
     Dosage: UNK, UNKNOWN
     Route: 065
     Dates: start: 20130103
  2. FORTEO [Interacting]
     Active Substance: TERIPARATIDE
     Dosage: UNK UNK, UNKNOWN
     Route: 065

REACTIONS (11)
  - Fatigue [Unknown]
  - Arthritis [Unknown]
  - Jaw disorder [Unknown]
  - Malaise [Unknown]
  - Drug dose omission [Unknown]
  - Body height decreased [Unknown]
  - Gingival disorder [Unknown]
  - Rhinorrhoea [Unknown]
  - Nasal cavity mass [Unknown]
  - Blood pressure decreased [Unknown]
  - Drug interaction [Unknown]

NARRATIVE: CASE EVENT DATE: 201409
